FAERS Safety Report 8984023 (Version 2)
Quarter: 2013Q2

REPORT INFORMATION
  Report Type: Spontaneous
  Country: US (occurrence: None)
  Receive Date: 20120508
  Receipt Date: 20120709
  Transmission Date: 20140414
  Serious: Yes (Other)
  Sender: FDA-Public Use
  Company Number: 2012HGS-003312

PATIENT
  Age: 66 Year
  Sex: Female
  Weight: 63.5 kg

DRUGS (20)
  1. BENLYSTA [Suspect]
     Indication: SYSTEMIC LUPUS ERYTHEMATOSUS
     Route: 041
     Dates: start: 20120119
  2. COREG (CARVEDILOL)(CARVEDILOL) [Concomitant]
  3. GABAPENTIN (GABAPENTIN) (GABAPENTIN) [Concomitant]
  4. PRIMIDON (PRIMDON) [Concomitant]
  5. ALPRAZOLAM (ALPRAZOLAM) (ALPRAZOLAM) [Concomitant]
  6. AGGRENOX (ASASANTIN) (ACETYLSALICYLIC ACID, DIPYRIDAMOLE) [Concomitant]
  7. KLONOPIN [Concomitant]
  8. SERTRALONE HCL (SERTRALINE) (SERTRALINE) [Concomitant]
  9. FUROSEMIDE [Concomitant]
  10. KLOR-CON (POTASSIUM CHLORIDE) (POTASSIUM CHLORIDE) [Concomitant]
  11. HYDROXYCHLOROQUINE SULFATE (HYDROXYCHLOROQUINE SULFATE) (HYDROXYCHLOROQUINE SULFATE) [Concomitant]
  12. ENALAPRIL MALEATE (ENALAPRIL MALEATE) (ENALAPIL MALEATE) [Concomitant]
  13. PRILOSEC(OMEPRAZOLE)(OMEPRAZOLE) [Concomitant]
  14. MULTIVITAMIN(VIGRAN)(ERGOCALCIFEROL, ASCORBIC ACID, PYRIDOXINE HYDROCHLORIDE, THIAMINE HYDROCHLORIDE, RETINOL, RIBOFLAVIN, NICOTINAMIDE, CALCIUM PANTOTHENATE) [Concomitant]
  15. EVOXAC(CEVIMELINE HYDROCHLORIDE)(CEVIMELINE HYDROCHLORIDE) [Concomitant]
  16. PREDNISONE(PREDNISONE)(PREDNISONE) [Concomitant]
  17. ALENDRONATE SODIUM(ALENDRONATE SODIUM)(ALENDRONATE SODIUM) [Concomitant]
  18. FISH OIL(FISH OIL)(FISH OIL) [Concomitant]
  19. SYNTHROID(LEVOTHYROXINE SODIUM)(LEVOTHYROXINE SODIUM) [Concomitant]
  20. LIPITOR (ATORVASTATIN CALCIUM) [Concomitant]

REACTIONS (3)
  - Fatigue [None]
  - Systemic lupus erythematosus rash [None]
  - Condition aggravated [None]
